FAERS Safety Report 7014000-9 (Version None)
Quarter: 2010Q3

REPORT INFORMATION
  Report Type: 
  Country: None (occurrence: None)
  Receive Date: 20100927
  Receipt Date: 20100609
  Transmission Date: 20110219
  Serious: Yes (Other)
  Sender: FDA-Public Use
  Company Number: GB-RANBAXY-2010RR-33677

PATIENT
  Age: 82 Year
  Sex: Female

DRUGS (3)
  1. LORATADINE [Suspect]
     Route: 065
  2. RAMIPRIL [Concomitant]
     Dosage: 2.5 MG, UNK
     Route: 065
  3. THYROXIN [Concomitant]
     Route: 065

REACTIONS (1)
  - LIP SWELLING [None]
